FAERS Safety Report 23636958 (Version 1)
Quarter: 2024Q1

REPORT INFORMATION
  Report Type: Spontaneous
  Country: ES (occurrence: ES)
  Receive Date: 20240315
  Receipt Date: 20240315
  Transmission Date: 20240410
  Serious: Yes (Life-Threatening)
  Sender: FDA-Public Use
  Company Number: None

PATIENT
  Age: 54 Year
  Sex: Female

DRUGS (4)
  1. SYNJARDY [Suspect]
     Active Substance: EMPAGLIFLOZIN\METFORMIN HYDROCHLORIDE
     Indication: Diabetes mellitus
     Route: 048
     Dates: start: 20190305, end: 20220420
  2. HUMALOG MIX75/25 KWIKPEN [Concomitant]
     Active Substance: INSULIN LISPRO
     Indication: Diabetes mellitus
     Route: 058
     Dates: start: 20161217
  3. TOUJEO 300 UNIDADES/ML SOLOSTAR SOLUCION INYECTABLE EN PLUMA PRECARGAD [Concomitant]
     Indication: Diabetes mellitus
     Route: 058
     Dates: start: 20161005
  4. ACIDO ACETILSALICILICO ACCORD 100 MG COMPRIMIDOS GASTRORRESISTENTES , [Concomitant]
     Indication: Cardiovascular event prophylaxis
     Route: 048
     Dates: start: 20090710

REACTIONS (8)
  - Vomiting [Recovered/Resolved]
  - Hypothermia [Recovered/Resolved]
  - Diabetic ketoacidosis [Recovered/Resolved]
  - Hypokalaemia [Recovered/Resolved]
  - Acute kidney injury [Recovered/Resolved]
  - Cardio-respiratory arrest [Recovered/Resolved]
  - Hyperglycaemia [Recovered/Resolved]
  - Depressed level of consciousness [Recovered/Resolved]

NARRATIVE: CASE EVENT DATE: 20220420
